FAERS Safety Report 15006051 (Version 1)
Quarter: 2018Q2

REPORT INFORMATION
  Report Type: Spontaneous
  Country: US (occurrence: US)
  Receive Date: 20180521
  Receipt Date: 20180521
  Transmission Date: 20180711
  Serious: Yes (Hospitalization)
  Sender: FDA-Public Use
  Company Number: None

PATIENT
  Age: 76 Year
  Sex: Male
  Weight: 82.5 kg

DRUGS (11)
  1. NA BICAR [Concomitant]
  2. VERALAN [Concomitant]
  3. MAVIK [Suspect]
     Active Substance: TRANDOLAPRIL
     Indication: HYPERTENSION
     Dosage: CHRONIC DATES OF USE
     Route: 048
  4. ALDACTONE [Suspect]
     Active Substance: SPIRONOLACTONE
     Indication: HYPERTENSION
     Dosage: CHRONIC DATES OF USE
     Route: 048
  5. ECOTRIN [Concomitant]
     Active Substance: ASPIRIN
  6. LOPID [Concomitant]
     Active Substance: GEMFIBROZIL
  7. FE [Concomitant]
     Active Substance: IRON
  8. AMARYL [Concomitant]
     Active Substance: GLIMEPIRIDE
  9. OMEGA 3 [Concomitant]
     Active Substance: OMEGA-3 FATTY ACIDS
  10. VITAMIN D2 [Concomitant]
     Active Substance: ERGOCALCIFEROL
  11. CRESTOR [Concomitant]
     Active Substance: ROSUVASTATIN CALCIUM

REACTIONS (5)
  - Respiratory disorder [None]
  - Hyperkalaemia [None]
  - Acute kidney injury [None]
  - Bradycardia [None]
  - Oedema peripheral [None]

NARRATIVE: CASE EVENT DATE: 20180124
